FAERS Safety Report 21038632 (Version 1)
Quarter: 2022Q3

REPORT INFORMATION
  Report Type: Other
  Country: None (occurrence: LT)
  Receive Date: 20220704
  Receipt Date: 20220704
  Transmission Date: 20221026
  Serious: Yes (Hospitalization)
  Sender: FDA-Public Use
  Company Number: LT-Appco Pharma LLC-2130513

PATIENT
  Age: 25 Year
  Sex: Female

DRUGS (2)
  1. SILDENAFIL CITRATE [Suspect]
     Active Substance: SILDENAFIL CITRATE
     Indication: Product used for unknown indication
     Route: 065
  2. BOSENTAN [Concomitant]
     Active Substance: BOSENTAN
     Route: 065

REACTIONS (1)
  - Exposure during pregnancy [Unknown]
